FAERS Safety Report 22916666 (Version 4)
Quarter: 2024Q3

REPORT INFORMATION
  Report Type: Spontaneous
  Country: US (occurrence: US)
  Receive Date: 20230907
  Receipt Date: 20240913
  Transmission Date: 20241016
  Serious: Yes (Death, Other)
  Sender: PFIZER
  Company Number: US-PFIZER INC-PV202300151661

PATIENT
  Age: 86 Year
  Sex: Female

DRUGS (2)
  1. XELJANZ [Suspect]
     Active Substance: TOFACITINIB CITRATE
     Dosage: 5 MG
  2. XELJANZ [Suspect]
     Active Substance: TOFACITINIB CITRATE
     Dosage: 5 MG, 1X/DAY (ONE TAB DAILY)

REACTIONS (4)
  - Death [Fatal]
  - Deafness [Unknown]
  - Hypoacusis [Unknown]
  - Confusional state [Unknown]

NARRATIVE: CASE EVENT DATE: 20240621
